FAERS Safety Report 7715092-1 (Version None)
Quarter: 2011Q3

REPORT INFORMATION
  Report Type: 
  Country: None (occurrence: None)
  Receive Date: 20110829
  Receipt Date: 20110817
  Transmission Date: 20111222
  Serious: Yes (Hospitalization, Other)
  Sender: FDA-Public Use
  Company Number: PHHY2011DE68283

PATIENT
  Sex: Male
  Weight: 73 kg

DRUGS (11)
  1. ASPIRIN [Concomitant]
     Indication: HAEMODILUTION
     Dosage: 100 MG, UNK
     Route: 048
     Dates: start: 20090201
  2. SIMAVASTATIN [Concomitant]
     Indication: HYPERCHOLESTEROLAEMIA
     Dosage: 10 MG, UNK
     Route: 048
     Dates: start: 20090101
  3. ANGIOTENSIN II ANTAGONISTS [Concomitant]
     Dosage: UNK UKN, UNK
     Route: 048
     Dates: end: 20110201
  4. DIURETICS [Concomitant]
     Dosage: UNK UKN, UNK
     Route: 048
  5. RASILEZ [Suspect]
     Indication: HYPERTENSION
     Dosage: 150 MG, UNK
     Route: 048
     Dates: start: 20081208, end: 20100201
  6. BETA BLOCKING AGENTS [Concomitant]
     Dosage: UNK UKN, UNK
     Route: 048
     Dates: end: 20091117
  7. PLATELETS [Concomitant]
     Dosage: UNK UKN, UNK
     Route: 048
  8. CALCIUM CHANNEL BLOCKERS [Concomitant]
     Dosage: UNK UKN, UNK
     Route: 048
     Dates: end: 20091117
  9. ACE INHIBITORS [Concomitant]
     Dosage: UNK UKN, UNK
     Route: 048
     Dates: start: 20110202
  10. RAMIPRIL [Concomitant]
     Indication: HYPERTENSION
     Dosage: UNK UKN, UNK
     Dates: start: 20100901
  11. AMLODIPINE [Concomitant]
     Dosage: 5 MG, UNK
     Route: 048
     Dates: start: 20080901

REACTIONS (4)
  - DYSPNOEA [None]
  - ANGINA PECTORIS [None]
  - TRANSITIONAL CELL CARCINOMA [None]
  - MYOCARDIAL ISCHAEMIA [None]
